FAERS Safety Report 4889915-8 (Version None)
Quarter: 2006Q1

REPORT INFORMATION
  Report Type: 
  Country: None (occurrence: None)
  Receive Date: 20060124
  Receipt Date: 20051005
  Transmission Date: 20060701
  Serious: Yes (Hospitalization, Disabling)
  Sender: FDA-Public Use
  Company Number: US-MERCK-0510USA04476

PATIENT
  Age: 59 Year
  Sex: Female
  Weight: 67 kg

DRUGS (3)
  1. VIOXX [Suspect]
     Indication: ARTHRITIS
     Route: 048
     Dates: start: 20010101, end: 20040201
  2. NORVASC [Concomitant]
     Route: 065
  3. ADVAIR DISKUS 100/50 [Concomitant]
     Route: 065

REACTIONS (5)
  - CAROTID ARTERY STENOSIS [None]
  - CEREBROVASCULAR ACCIDENT [None]
  - PNEUMONIA [None]
  - SINUSITIS [None]
  - TRANSIENT ISCHAEMIC ATTACK [None]
